FAERS Safety Report 9393007 (Version 1)
Quarter: 2013Q3

REPORT INFORMATION
  Report Type: Spontaneous
  Country: US (occurrence: US)
  Receive Date: 20130710
  Receipt Date: 20130710
  Transmission Date: 20140515
  Serious: Yes (Other)
  Sender: FDA-Public Use
  Company Number: US-BAYER-2013-083309

PATIENT
  Age: 87 Year
  Sex: Male

DRUGS (2)
  1. CIPRO [Suspect]
     Indication: BACTERIAL INFECTION
     Dosage: UNK UNK, BID
  2. ZYVOX [Suspect]
     Indication: BACTERIAL INFECTION
     Dosage: UNK UNK, BID

REACTIONS (2)
  - Renal impairment [None]
  - Platelet count decreased [None]
